FAERS Safety Report 14918905 (Version 1)
Quarter: 2018Q2

REPORT INFORMATION
  Report Type: Spontaneous
  Country: SE (occurrence: SE)
  Receive Date: 20180521
  Receipt Date: 20180521
  Transmission Date: 20180711
  Serious: Yes (Life-Threatening)
  Sender: FDA-Public Use
  Company Number: SE-ASTRAZENECA-2018SE62834

PATIENT
  Age: 71 Year
  Sex: Female

DRUGS (6)
  1. EMGESAN [Concomitant]
  2. METFORMIN [Concomitant]
     Active Substance: METFORMIN HYDROCHLORIDE
  3. FENAZON APL [Concomitant]
  4. OVESTERIN [Concomitant]
     Active Substance: ESTRIOL
  5. DAKTACORT CREAM [Concomitant]
  6. FORXIGA [Suspect]
     Active Substance: DAPAGLIFLOZIN
     Indication: TYPE 2 DIABETES MELLITUS
     Route: 048
     Dates: start: 20161212, end: 20180409

REACTIONS (1)
  - Diabetic ketoacidosis [Recovered/Resolved]

NARRATIVE: CASE EVENT DATE: 20180409
